FAERS Safety Report 18153785 (Version 3)
Quarter: 2020Q4

REPORT INFORMATION
  Report Type: Spontaneous
  Country: US (occurrence: US)
  Receive Date: 20200816
  Receipt Date: 20201014
  Transmission Date: 20210113
  Serious: Yes (Other)
  Sender: FDA-Public Use
  Company Number: NVSC2020US224534

PATIENT
  Sex: Male

DRUGS (1)
  1. COSENTYX [Suspect]
     Active Substance: SECUKINUMAB
     Indication: PSORIASIS
     Dosage: 150 MG, QMO
     Route: 058

REACTIONS (6)
  - Jaw disorder [Unknown]
  - Muscle tightness [Recovered/Resolved]
  - Pulmonary mass [Unknown]
  - Tuberculosis [Unknown]
  - Vision blurred [Unknown]
  - Mastication disorder [Recovered/Resolved]
